FAERS Safety Report 9395680 (Version 2)
Quarter: 2013Q3

REPORT INFORMATION
  Report Type: Report from Study
  Country: US (occurrence: US)
  Receive Date: 20130711
  Receipt Date: 20130719
  Transmission Date: 20140515
  Serious: Yes (Hospitalization)
  Sender: FDA-Public Use
  Company Number: US-JNJFOC-20130704876

PATIENT
  Age: 13 Year
  Sex: Female
  Weight: 44.7 kg

DRUGS (19)
  1. REMICADE [Suspect]
     Indication: CROHN^S DISEASE
     Route: 042
     Dates: start: 20080205, end: 20090114
  2. HUMIRA [Suspect]
     Indication: CROHN^S DISEASE
     Route: 065
     Dates: start: 20130213
  3. HUMIRA [Suspect]
     Indication: CROHN^S DISEASE
     Route: 065
     Dates: start: 20090218
  4. ONDANSETRON [Concomitant]
     Route: 065
  5. CHOLECALCIFEROL [Concomitant]
     Route: 065
  6. LOPERAMIDE [Concomitant]
     Route: 065
  7. CETIRIZINE [Concomitant]
     Route: 065
  8. ZANTAC [Concomitant]
     Route: 065
  9. PREVACID [Concomitant]
     Route: 065
  10. HYDROCORTISONE [Concomitant]
     Route: 061
  11. KENALOG [Concomitant]
     Route: 061
  12. FLUOCINOLONE [Concomitant]
     Route: 061
  13. NYSTATIN [Concomitant]
     Route: 061
  14. PIMECROLIMUS [Concomitant]
     Route: 061
  15. CLOBETASOL [Concomitant]
     Route: 061
  16. TACROLIMUS [Concomitant]
     Route: 061
  17. MOMETASONE [Concomitant]
     Route: 061
  18. A-MANTLE (LIDOCAINE/HYDROCORTISONE [Concomitant]
     Route: 065
  19. PROTOPIC [Concomitant]
     Route: 065

REACTIONS (1)
  - Pneumonia [Recovered/Resolved]
